FAERS Safety Report 13572087 (Version 2)
Quarter: 2017Q3

REPORT INFORMATION
  Report Type: Spontaneous
  Country: DK (occurrence: DK)
  Receive Date: 20170523
  Receipt Date: 20170703
  Transmission Date: 20171127
  Serious: Yes (Other)
  Sender: FDA-Public Use
  Company Number: DK-TEVA-768378ACC

PATIENT
  Age: 79 Year
  Sex: Male

DRUGS (3)
  1. PINEX [Suspect]
     Active Substance: ACETAMINOPHEN
     Indication: PAIN
     Route: 048
     Dates: start: 2015
  2. METFORMIN [Suspect]
     Active Substance: METFORMIN HYDROCHLORIDE
     Indication: BLOOD GLUCOSE INCREASED
     Dosage: 500 MG, 1-2 DF DAILY
     Dates: start: 20150621, end: 201508
  3. PANODIL ZAPP [Concomitant]
     Active Substance: ACETAMINOPHEN
     Indication: ABDOMINAL PAIN UPPER
     Route: 048

REACTIONS (2)
  - Gastric haemorrhage [Recovered/Resolved]
  - Ulcer [Recovered/Resolved]
